FAERS Safety Report 17478456 (Version 1)
Quarter: 2020Q1

REPORT INFORMATION
  Report Type: Report from Study
  Country: CA (occurrence: CA)
  Receive Date: 20200228
  Receipt Date: 20200228
  Transmission Date: 20200409
  Serious: Yes (Other)
  Sender: FDA-Public Use
  Company Number: CA-JNJFOC-20190100061

PATIENT
  Age: 44 Year
  Sex: Female

DRUGS (5)
  1. SIMPONI [Suspect]
     Active Substance: GOLIMUMAB
     Indication: ANKYLOSING SPONDYLITIS
     Dosage: ALSO REPORTED AS 02 MG/KG
     Route: 042
     Dates: start: 20151115
  2. SIMPONI [Suspect]
     Active Substance: GOLIMUMAB
     Indication: CROHN^S DISEASE
     Route: 042
     Dates: start: 20181115
  3. SIMPONI [Suspect]
     Active Substance: GOLIMUMAB
     Route: 042
  4. SIMPONI [Suspect]
     Active Substance: GOLIMUMAB
     Route: 042
  5. SIMPONI [Suspect]
     Active Substance: GOLIMUMAB
     Route: 042

REACTIONS (12)
  - Off label use [Unknown]
  - Nasopharyngitis [Recovered/Resolved]
  - Drug ineffective [Unknown]
  - Pharyngitis streptococcal [Recovered/Resolved]
  - Nausea [Not Recovered/Not Resolved]
  - Ankylosing spondylitis [Not Recovered/Not Resolved]
  - Malaise [Not Recovered/Not Resolved]
  - Biliary tract disorder [Unknown]
  - Abdominal distension [Not Recovered/Not Resolved]
  - Product use issue [Unknown]
  - Gastroenteritis viral [Not Recovered/Not Resolved]
  - Pancreatic disorder [Unknown]

NARRATIVE: CASE EVENT DATE: 20181224
